FAERS Safety Report 7911133-7 (Version None)
Quarter: 2011Q4

REPORT INFORMATION
  Report Type: 
  Country: None (occurrence: None)
  Receive Date: 20111114
  Receipt Date: 20111108
  Transmission Date: 20120403
  Serious: Yes (Other)
  Sender: FDA-Public Use
  Company Number: US-CELGENEUS-163-21880-11111184

PATIENT
  Sex: Male
  Weight: 85.352 kg

DRUGS (17)
  1. ZOMETA [Concomitant]
     Route: 041
     Dates: start: 20100101
  2. VITAMIN B-12 [Concomitant]
     Dosage: 1000 MILLIGRAM
     Route: 048
     Dates: start: 20050101
  3. MVI + IRON [Concomitant]
     Dosage: 1
     Route: 048
     Dates: start: 20050101
  4. REVLIMID [Suspect]
     Indication: MULTIPLE MYELOMA
     Dosage: 15 MILLIGRAM
     Route: 048
     Dates: start: 20110720
  5. STAHIST [Concomitant]
     Route: 055
     Dates: start: 20110501
  6. ASPIRIN [Concomitant]
     Dosage: 81 MILLIGRAM
     Route: 048
     Dates: start: 20080101
  7. ALLEGRA [Concomitant]
     Dosage: 180 MILLIGRAM
     Route: 048
     Dates: start: 20110101
  8. LISINOPRIL AND HYDROCHLOROTHIAZIDE [Concomitant]
     Dosage: 10/12
     Route: 048
     Dates: start: 20090101
  9. FISH OIL [Concomitant]
     Dosage: 1
     Route: 048
     Dates: start: 20050101
  10. CALCIUM + VITAMIN D [Concomitant]
     Dosage: 1
     Route: 048
     Dates: start: 20050101
  11. DEPO-TESTOSTERONE [Concomitant]
     Route: 050
     Dates: start: 20110301
  12. VENTOLIN [Concomitant]
     Route: 055
     Dates: start: 20100101
  13. GLUCOSAMINE [Concomitant]
     Dosage: 1
     Route: 048
     Dates: start: 20050101
  14. VITAMIN D [Concomitant]
     Dosage: 2000IU
     Route: 048
     Dates: start: 20050101
  15. MELATONIN [Concomitant]
     Dosage: 3 MILLIGRAM
     Route: 048
     Dates: start: 20110501
  16. KEFLEX [Concomitant]
     Dosage: 500 MILLIGRAM
     Route: 048
     Dates: start: 20110714, end: 20110723
  17. RED WINE COMPLEX [Concomitant]
     Dosage: 1
     Route: 048
     Dates: start: 20050101

REACTIONS (2)
  - PROSTATE INFECTION [None]
  - NEPHROLITHIASIS [None]
